FAERS Safety Report 5498335-7 (Version None)
Quarter: 2007Q4

REPORT INFORMATION
  Report Type: 
  Country: None (occurrence: None)
  Receive Date: 20071025
  Receipt Date: 20070502
  Transmission Date: 20080405
  Serious: No
  Sender: FDA-Public Use
  Company Number: A0649700A

PATIENT
  Age: 33 Year
  Sex: Female

DRUGS (2)
  1. ADVAIR DISKUS 100/50 [Suspect]
     Route: 055
     Dates: start: 20070401, end: 20070401
  2. PREDNISONE [Concomitant]

REACTIONS (1)
  - THROAT TIGHTNESS [None]
